FAERS Safety Report 4886983-4 (Version None)
Quarter: 2006Q1

REPORT INFORMATION
  Report Type: 
  Country: None (occurrence: None)
  Receive Date: 20060118
  Receipt Date: 20060109
  Transmission Date: 20060701
  Serious: Yes (Hospitalization)
  Sender: FDA-Public Use
  Company Number: US-2005-017045

PATIENT
  Age: 53 Year
  Sex: Female
  Weight: 108.8 kg

DRUGS (1)
  1. BETASERON [Suspect]
     Indication: MULTIPLE SCLEROSIS
     Dosage: 8 MIU, 3X/WEEK, SUBCUTANEOUS
     Route: 058
     Dates: start: 20050418

REACTIONS (6)
  - ASTHENIA [None]
  - BALANCE DISORDER [None]
  - CONVULSION [None]
  - FALL [None]
  - FOOT FRACTURE [None]
  - TRAUMATIC FRACTURE [None]
